FAERS Safety Report 4555589-9 (Version None)
Quarter: 2005Q1

REPORT INFORMATION
  Report Type: 
  Country: None (occurrence: None)
  Receive Date: 20050119
  Receipt Date: 20050111
  Transmission Date: 20050727
  Serious: Yes (Hospitalization)
  Sender: FDA-Public Use
  Company Number: DE-BRISTOL-MYERS SQUIBB COMPANY-12820510

PATIENT
  Age: 56 Year
  Sex: Female

DRUGS (2)
  1. MITOMYCIN-C [Suspect]
     Indication: BREAST CANCER METASTATIC
     Route: 042
     Dates: start: 20041108, end: 20041212
  2. XELODA [Suspect]
     Indication: BREAST CANCER METASTATIC
     Route: 048
     Dates: start: 20041108, end: 20041212

REACTIONS (3)
  - CHEST PAIN [None]
  - DYSPNOEA [None]
  - EJECTION FRACTION DECREASED [None]
